FAERS Safety Report 16533568 (Version 5)
Quarter: 2024Q3

REPORT INFORMATION
  Report Type: Report from Study
  Country: BR (occurrence: BR)
  Receive Date: 20190705
  Receipt Date: 20240815
  Transmission Date: 20241016
  Serious: Yes (Hospitalization, Other)
  Sender: BRISTOL MYERS SQUIBB
  Company Number: BR-BRISTOL-MYERS SQUIBB COMPANY-BMS-2019-064199

PATIENT
  Age: 67 Year
  Sex: Male

DRUGS (9)
  1. NIVOLUMAB [Suspect]
     Active Substance: NIVOLUMAB
     Indication: Malignant melanoma
     Dosage: 1 MILLIGRAM/KILOGRAM, Q3WK (4 DOSES)
     Route: 042
  2. NIVOLUMAB [Suspect]
     Active Substance: NIVOLUMAB
     Indication: Metastatic malignant melanoma
     Dosage: 3 MILLIGRAM/KILOGRAM, Q2WK
     Route: 042
  3. NIVOLUMAB [Suspect]
     Active Substance: NIVOLUMAB
     Dosage: 480 MILLIGRAM, QMO
     Route: 042
  4. NIVOLUMAB [Suspect]
     Active Substance: NIVOLUMAB
     Dosage: 3 MILLIGRAM/KILOGRAM, QMO
     Route: 042
  5. IPILIMUMAB [Suspect]
     Active Substance: IPILIMUMAB
     Indication: Malignant melanoma
     Dosage: 3 MILLIGRAM/KILOGRAM, Q3WK
     Route: 042
  6. IPILIMUMAB [Suspect]
     Active Substance: IPILIMUMAB
     Indication: Metastatic malignant melanoma
  7. GLIFAGE [Concomitant]
     Active Substance: METFORMIN HYDROCHLORIDE
     Indication: Product used for unknown indication
  8. FORFIG [Concomitant]
     Indication: Product used for unknown indication
  9. XIGDUO XR [Concomitant]
     Active Substance: DAPAGLIFLOZIN PROPANEDIOL\METFORMIN HYDROCHLORIDE
     Indication: Product used for unknown indication

REACTIONS (21)
  - Hepatitis [Recovered/Resolved]
  - Hyperkalaemia [Recovered/Resolved]
  - General physical health deterioration [Recovered/Resolved]
  - Glucocorticoid deficiency [Recovered/Resolved]
  - Immune-mediated thyroiditis [Recovered/Resolved]
  - Rash maculo-papular [Recovered/Resolved]
  - Urticaria [Recovered/Resolved]
  - Hypomagnesaemia [Recovered/Resolved]
  - Hypothyroidism [Recovered/Resolved]
  - Proteinuria [Recovered/Resolved]
  - Hypogonadism [Recovered/Resolved]
  - Apathy [Unknown]
  - Lethargy [Unknown]
  - Depression [Unknown]
  - Decreased appetite [Unknown]
  - Weight decreased [Unknown]
  - Off label use [Unknown]
  - Hemianopia [Unknown]
  - Polyuria [Unknown]
  - Blood glucose abnormal [Unknown]
  - Dyslipidaemia [Unknown]
